FAERS Safety Report 9181349 (Version 2)
Quarter: 2013Q2

REPORT INFORMATION
  Report Type: Spontaneous
  Country: US (occurrence: US)
  Receive Date: 20130322
  Receipt Date: 20130411
  Transmission Date: 20140414
  Serious: No
  Sender: FDA-Public Use
  Company Number: US-ROXANE LABORATORIES, INC.-2013-RO-00383RO

PATIENT
  Age: 73 Year
  Sex: Male
  Weight: 63 kg

DRUGS (6)
  1. FUROSEMIDE [Suspect]
     Indication: CARDIAC FAILURE CONGESTIVE
     Dosage: 40 MG
     Route: 048
     Dates: start: 20130101
  2. FUROSEMIDE [Suspect]
     Dosage: 80 MG
     Route: 048
  3. RANEXA [Concomitant]
     Dosage: 500 MG
  4. SPIRONOLACTONE [Concomitant]
     Dosage: 25 MG
  5. TRICOR [Concomitant]
     Dosage: 145 MG
  6. COUMADIN [Concomitant]
     Dosage: 3 MG

REACTIONS (2)
  - Drug ineffective [Not Recovered/Not Resolved]
  - Product quality issue [Unknown]
